FAERS Safety Report 15325543 (Version 1)
Quarter: 2018Q4

REPORT INFORMATION
  Report Type: Spontaneous
  Country: DE (occurrence: DE)
  Receive Date: 20180828
  Receipt Date: 20180828
  Transmission Date: 20190204
  Serious: Yes (Hospitalization, Other)
  Sender: FDA-Public Use
  Company Number: DE-PFIZER INC-2018338888

PATIENT
  Age: 13 Year
  Sex: Female

DRUGS (3)
  1. TAVOR (LORAZEPAM) [Suspect]
     Active Substance: LORAZEPAM
     Indication: SUICIDE ATTEMPT
     Dosage: 10 MG, UNK
     Route: 048
     Dates: start: 20180419, end: 20180420
  2. VITAMINE A [Concomitant]
     Active Substance: RETINOL
     Dosage: 10 MG DAILY, 1X/DAY
     Route: 048
  3. FERRO SANOL [Concomitant]
     Active Substance: FERROUS GLYCINE SULFATE
     Indication: IRON DEFICIENCY
     Dosage: 40 MG DAILY, 1X/DAY
     Route: 048

REACTIONS (6)
  - Gait disturbance [Recovered/Resolved]
  - Intentional overdose [Recovered/Resolved]
  - Drug ineffective for unapproved indication [Unknown]
  - Somnolence [Recovered/Resolved]
  - Asthenia [Recovered/Resolved]
  - Suicide attempt [Recovered/Resolved]

NARRATIVE: CASE EVENT DATE: 20180419
